FAERS Safety Report 11987554 (Version 2)
Quarter: 2016Q2

REPORT INFORMATION
  Report Type: Spontaneous
  Country: KR (occurrence: KR)
  Receive Date: 20160202
  Receipt Date: 20160412
  Transmission Date: 20160815
  Serious: Yes (Hospitalization)
  Sender: FDA-Public Use
  Company Number: KR-AMGEN-KORCT2016010768

PATIENT
  Age: 63 Year
  Sex: Female
  Weight: 56 kg

DRUGS (13)
  1. BRILINTA [Concomitant]
     Active Substance: TICAGRELOR
     Dosage: 180 MG, UNK
     Route: 048
     Dates: start: 20140816
  2. RENALMIN [Concomitant]
     Dosage: 60 MG, UNK
     Route: 048
     Dates: start: 19931023
  3. TASNA [Concomitant]
     Dosage: 500 MG, UNK
     Route: 048
     Dates: start: 20110112
  4. ASPIRIN. [Concomitant]
     Active Substance: ASPIRIN
     Dosage: 100 MG, UNK
     Route: 048
     Dates: start: 20130809
  5. ALLOPURINOL. [Concomitant]
     Active Substance: ALLOPURINOL
     Dosage: 100 MG, UNK
     Route: 048
     Dates: start: 19931023
  6. LIPITOR [Concomitant]
     Active Substance: ATORVASTATIN CALCIUM
     Dosage: 10 MG, UNK
     Route: 048
     Dates: start: 20140816
  7. REGPARA [Suspect]
     Active Substance: CINACALCET HYDROCHLORIDE
     Indication: HYPERPARATHYROIDISM SECONDARY
     Dosage: 25 MG, QD
     Route: 048
     Dates: start: 20150415
  8. NESP [Concomitant]
     Active Substance: DARBEPOETIN ALFA
     Dosage: 60 MUG, UNK
     Route: 042
     Dates: start: 20150612
  9. VASTINAN MR [Concomitant]
     Dosage: 70 MG, UNK
     Route: 048
     Dates: start: 20140816
  10. MOLSITON [Concomitant]
     Dosage: 4 MG, UNK
     Route: 048
     Dates: start: 20140816
  11. RENVELA [Concomitant]
     Active Substance: SEVELAMER CARBONATE
     Dosage: 5400 MG, UNK
     Route: 048
     Dates: start: 20150206
  12. PLETAAL [Concomitant]
     Active Substance: CILOSTAZOL
     Dosage: 100 MG, UNK
     Route: 048
     Dates: start: 20140816
  13. ATACAND [Concomitant]
     Active Substance: CANDESARTAN CILEXETIL
     Dosage: 4 MG, UNK
     Route: 048
     Dates: start: 20140816

REACTIONS (1)
  - Myocardial ischaemia [Unknown]

NARRATIVE: CASE EVENT DATE: 20150608
